FAERS Safety Report 8307232-0 (Version None)
Quarter: 2012Q2

REPORT INFORMATION
  Report Type: 
  Country: None (occurrence: None)
  Receive Date: 20120424
  Receipt Date: 20120417
  Transmission Date: 20120825
  Serious: Yes (Other)
  Sender: FDA-Public Use
  Company Number: MX-B.I. PHARMACEUTICALS,INC./RIDGEFIELD-2012-EU-01844GD

PATIENT
  Age: 58 Year
  Sex: Female

DRUGS (1)
  1. IPRATROPIUM BROMIDE AND ALBUTEROL SULFATE [Suspect]
     Indication: ASTHMA
     Route: 055

REACTIONS (4)
  - CONJUNCTIVAL OEDEMA [None]
  - ANGIOEDEMA [None]
  - BRONCHOSPASM PARADOXICAL [None]
  - TYPE I HYPERSENSITIVITY [None]
